FAERS Safety Report 7513249-6 (Version None)
Quarter: 2011Q2

REPORT INFORMATION
  Report Type: 
  Country: None (occurrence: None)
  Receive Date: 20110531
  Receipt Date: 20110524
  Transmission Date: 20111010
  Serious: Yes (Death, Hospitalization, Other)
  Sender: FDA-Public Use
  Company Number: US-ALEXION-A201100193

PATIENT
  Sex: Male

DRUGS (6)
  1. SOLIRIS [Suspect]
     Indication: PAROXYSMAL NOCTURNAL HAEMOGLOBINURIA
     Dosage: 600 MG, QW
     Route: 042
     Dates: start: 20100301, end: 20100301
  2. SOLIRIS [Suspect]
     Dosage: 900 MG, Q2W
     Route: 042
     Dates: start: 20100329
  3. ALDACTONE [Concomitant]
     Indication: HYPERTENSION
     Dosage: UNK
  4. NEURONTIN [Concomitant]
     Dosage: UNK
  5. PRILOSEC [Concomitant]
     Indication: GASTROOESOPHAGEAL REFLUX DISEASE
     Dosage: UNK
  6. LASIX [Suspect]

REACTIONS (14)
  - CHRONIC LYMPHOCYTIC LEUKAEMIA RECURRENT [None]
  - DIARRHOEA [None]
  - DISEASE PROGRESSION [None]
  - DYSPNOEA [None]
  - HAEMOGLOBIN DECREASED [None]
  - FALL [None]
  - ASCITES [None]
  - ANAEMIA [None]
  - PLATELET COUNT DECREASED [None]
  - HAEMATOCHEZIA [None]
  - HEAD INJURY [None]
  - SEPSIS [None]
  - OEDEMA PERIPHERAL [None]
  - LETHARGY [None]
